FAERS Safety Report 25853856 (Version 4)
Quarter: 2025Q4

REPORT INFORMATION
  Report Type: Report from Study
  Country: US (occurrence: US)
  Receive Date: 20250926
  Receipt Date: 20251114
  Transmission Date: 20260118
  Serious: No
  Sender: MALLINCKRODT
  Company Number: US-MALLINCKRODT-MNK202506055

PATIENT
  Age: 49 Year
  Sex: Female

DRUGS (2)
  1. CORTICOTROPIN [Suspect]
     Active Substance: CORTICOTROPIN
     Indication: Sarcoidosis
     Dosage: 40 UNITS
     Route: 058
     Dates: start: 20250924
  2. VEOZAH [Concomitant]
     Active Substance: FEZOLINETANT
     Indication: Hot flush
     Dosage: UNKNOWN

REACTIONS (5)
  - Injection site pain [Unknown]
  - Injection site discharge [Unknown]
  - Injection site haemorrhage [Unknown]
  - Injection site discolouration [Unknown]
  - Underdose [Unknown]

NARRATIVE: CASE EVENT DATE: 20250101
